FAERS Safety Report 25411455 (Version 1)
Quarter: 2025Q2

REPORT INFORMATION
  Report Type: Report from Study
  Country: PK (occurrence: PK)
  Receive Date: 20250609
  Receipt Date: 20250609
  Transmission Date: 20250717
  Serious: Yes (Death)
  Sender: ROCHE
  Company Number: PK-ROCHE-10000302204

PATIENT
  Age: 70 Year
  Sex: Male

DRUGS (1)
  1. TECENTRIQ [Suspect]
     Active Substance: ATEZOLIZUMAB
     Indication: Diffuse large B-cell lymphoma
     Dosage: SOLUTION
     Route: 042
     Dates: start: 20250219

REACTIONS (1)
  - Disease progression [Fatal]
